FAERS Safety Report 5978136-3 (Version None)
Quarter: 2008Q4

REPORT INFORMATION
  Report Type: 
  Country: None (occurrence: None)
  Receive Date: 20081204
  Receipt Date: 20081120
  Transmission Date: 20090506
  Serious: Yes (Hospitalization)
  Sender: FDA-Public Use
  Company Number: US-RB-006950-08

PATIENT
  Age: 6 Year
  Sex: Male

DRUGS (3)
  1. DEXTROMETHORPHAN HYDROBROMIDE [Suspect]
     Dosage: FOUND WITH AN EMPTY BOTTLE. ESTIMATED DOSE 40 MG/KG.
     Route: 048
  2. SERTRALINE [Suspect]
  3. CAFFEINE [Suspect]

REACTIONS (10)
  - CONFUSIONAL STATE [None]
  - DRUG INTERACTION [None]
  - HYPERHIDROSIS [None]
  - IRRITABILITY [None]
  - LETHARGY [None]
  - MUSCLE RIGIDITY [None]
  - MYOCLONUS [None]
  - OVERDOSE [None]
  - SEROTONIN SYNDROME [None]
  - SKIN WARM [None]
